FAERS Safety Report 11329463 (Version 1)
Quarter: 2015Q3

REPORT INFORMATION
  Report Type: Spontaneous
  Country: CN (occurrence: None)
  Receive Date: 20150730
  Receipt Date: 20150730
  Transmission Date: 20151125
  Serious: Yes (Hospitalization, Other)
  Sender: FDA-Public Use
  Company Number: CN-2015VAL000491

PATIENT
  Age: 67 Year
  Sex: Male

DRUGS (5)
  1. LOTENSIN [Suspect]
     Active Substance: BENAZEPRIL HYDROCHLORIDE
     Indication: HYPERTENSION
     Route: 048
     Dates: start: 20150222, end: 20150321
  2. ASPIRIN (ACETYLSALICYLIC ACID) [Concomitant]
     Active Substance: ASPIRIN
  3. TRIMETAZIDINE HYDROCHLORIDE (TRIMETAZIDINE HYDROCHLORIDE) [Concomitant]
  4. BETALOC (METOPROLOL TARTRATE) [Concomitant]
  5. FLUVASTATIN SODIUM (FLUVASTATIN SODIUM) [Concomitant]

REACTIONS (1)
  - Renal failure [None]

NARRATIVE: CASE EVENT DATE: 20150321
